FAERS Safety Report 20377276 (Version 2)
Quarter: 2022Q1

REPORT INFORMATION
  Report Type: Spontaneous
  Country: US (occurrence: None)
  Receive Date: 20220126
  Receipt Date: 20220317
  Transmission Date: 20220423
  Serious: No
  Sender: FDA-Public Use
  Company Number: 2022A031234

PATIENT
  Sex: Female

DRUGS (1)
  1. SAPHNELO [Suspect]
     Active Substance: ANIFROLUMAB-FNIA
     Indication: Systemic lupus erythematosus
     Route: 042

REACTIONS (5)
  - Attention deficit hyperactivity disorder [Unknown]
  - Panic attack [Unknown]
  - Nasal congestion [Unknown]
  - Insomnia [Unknown]
  - Depression [Unknown]
